FAERS Safety Report 8088023-5 (Version None)
Quarter: 2012Q1

REPORT INFORMATION
  Report Type: 
  Country: None (occurrence: None)
  Receive Date: 20120128
  Receipt Date: 20110526
  Transmission Date: 20120608
  Serious: No
  Sender: FDA-Public Use
  Company Number: US-ABBOTT-11P-163-0728839-00

PATIENT
  Sex: Male

DRUGS (5)
  1. HUMIRA [Suspect]
     Indication: PSORIASIS
     Dates: start: 20100504
  2. TOPROL-XL [Concomitant]
     Indication: HYPERTENSION
  3. UNKNOWN STEROID CREAM [Concomitant]
     Indication: PSORIASIS
  4. TRENTAL [Concomitant]
     Indication: ANTICOAGULANT THERAPY
  5. ASPIRIN [Concomitant]
     Indication: PRODUCT USED FOR UNKNOWN INDICATION

REACTIONS (1)
  - PSORIASIS [None]
